FAERS Safety Report 18739201 (Version 2)
Quarter: 2021Q2

REPORT INFORMATION
  Report Type: Spontaneous
  Country: US (occurrence: US)
  Receive Date: 20210114
  Receipt Date: 20210412
  Transmission Date: 20210717
  Serious: No
  Sender: FDA-Public Use
  Company Number: US-ALLERGAN-2048561US

PATIENT
  Age: 61 Year
  Sex: Female

DRUGS (7)
  1. PROPRANOLOL [Concomitant]
     Active Substance: PROPRANOLOL HYDROCHLORIDE
     Indication: MIGRAINE PROPHYLAXIS
  2. ALEVE [Concomitant]
     Active Substance: NAPROXEN SODIUM
     Dosage: UNK, PRN
     Route: 048
  3. NURTEC ODT [Concomitant]
     Active Substance: RIMEGEPANT SULFATE
     Indication: MIGRAINE
  4. TYLENOL [Concomitant]
     Active Substance: ACETAMINOPHEN
     Dosage: UNK, PRN
     Route: 048
  5. UBRELVY [Suspect]
     Active Substance: UBROGEPANT
     Indication: MIGRAINE
     Dosage: TOOK ONE DOSE OF 100 MG
     Route: 048
     Dates: start: 202009, end: 202009
  6. ALEVE [Concomitant]
     Active Substance: NAPROXEN SODIUM
     Indication: MIGRAINE
     Dosage: UNK, PRN
     Route: 048
     Dates: start: 202009
  7. CLARITIN [Concomitant]
     Active Substance: LORATADINE
     Dosage: UNK, PRN

REACTIONS (1)
  - Drug ineffective [Unknown]

NARRATIVE: CASE EVENT DATE: 202009
